APPROVED DRUG PRODUCT: METHYLDOPA
Active Ingredient: METHYLDOPA
Strength: 250MG
Dosage Form/Route: TABLET;ORAL
Application: A070076 | Product #002
Applicant: RISING PHARMA HOLDING INC
Approved: Apr 18, 1985 | RLD: No | RS: No | Type: RX